FAERS Safety Report 8386127-0 (Version None)
Quarter: 2012Q2

REPORT INFORMATION
  Report Type: 
  Country: None (occurrence: None)
  Receive Date: 20120525
  Receipt Date: 20120521
  Transmission Date: 20120825
  Serious: Yes (Hospitalization)
  Sender: FDA-Public Use
  Company Number: FR-JNJFOC-20120510276

PATIENT
  Sex: Female

DRUGS (9)
  1. NEBIVOLOL HCL [Concomitant]
     Indication: PRODUCT USED FOR UNKNOWN INDICATION
     Route: 065
  2. OXAZEPAM [Concomitant]
     Indication: PRODUCT USED FOR UNKNOWN INDICATION
     Route: 065
     Dates: start: 20110601
  3. CLOBAZAM [Suspect]
     Indication: DISORIENTATION
     Route: 065
  4. DURAGESIC-100 [Suspect]
     Route: 062
     Dates: end: 20120203
  5. AMITRIPTYLINE HCL [Suspect]
     Indication: AGITATION
     Dosage: 40 MG/ML
     Route: 048
     Dates: start: 20110601, end: 20120206
  6. CLOBAZAM [Suspect]
     Indication: CONFUSIONAL STATE
     Route: 065
  7. IRBESARTAN [Concomitant]
     Indication: PRODUCT USED FOR UNKNOWN INDICATION
     Route: 065
  8. DURAGESIC-100 [Suspect]
     Indication: PAIN
     Route: 062
     Dates: start: 20120203
  9. PREDNISOLONE [Concomitant]
     Indication: PRODUCT USED FOR UNKNOWN INDICATION
     Route: 065
     Dates: start: 20110601

REACTIONS (2)
  - CONFUSIONAL STATE [None]
  - DISORIENTATION [None]
